FAERS Safety Report 6660370-0 (Version None)
Quarter: 2010Q1

REPORT INFORMATION
  Report Type: 
  Country: None (occurrence: None)
  Receive Date: 20100330
  Receipt Date: 20100330
  Transmission Date: 20100710
  Serious: No
  Sender: FDA-Public Use
  Company Number: None

PATIENT
  Sex: Female

DRUGS (1)
  1. NASONEX [Suspect]
     Indication: SINUS DISORDER
     Dosage: 2 SQUIRTS EACH NOSTRIL DAILY NASAL SPRAY
     Route: 045
     Dates: start: 20100313, end: 20100314

REACTIONS (2)
  - PRURITUS [None]
  - URTICARIA [None]
